FAERS Safety Report 21417311 (Version 1)
Quarter: 2022Q4

REPORT INFORMATION
  Report Type: Report from Study
  Country: FR (occurrence: None)
  Receive Date: 20221006
  Receipt Date: 20221006
  Transmission Date: 20230113
  Serious: Yes (Other)
  Sender: FDA-Public Use
  Company Number: FR-Merck Healthcare KGaA-9354562

PATIENT
  Sex: Female

DRUGS (1)
  1. CHORIOGONADOTROPIN ALFA [Suspect]
     Active Substance: CHORIOGONADOTROPIN ALFA
     Indication: In vitro fertilisation

REACTIONS (4)
  - Syncope [Unknown]
  - Vaginal haemorrhage [Unknown]
  - Ovarian cyst [Recovered/Resolved]
  - Pregnancy test false positive [Unknown]
